FAERS Safety Report 22585552 (Version 1)
Quarter: 2023Q2

REPORT INFORMATION
  Report Type: Spontaneous
  Country: US (occurrence: US)
  Receive Date: 20230610
  Receipt Date: 20230610
  Transmission Date: 20230721
  Serious: Yes (Other)
  Sender: FDA-Public Use
  Company Number: US-TEVA-2023-US-2894020

PATIENT
  Sex: Female

DRUGS (1)
  1. NORTRIPTYLINE HYDROCHLORIDE [Suspect]
     Active Substance: NORTRIPTYLINE HYDROCHLORIDE
     Indication: Headache
     Route: 065

REACTIONS (2)
  - Coeliac disease [Unknown]
  - Product use in unapproved indication [Unknown]
